FAERS Safety Report 8507107-8 (Version None)
Quarter: 2012Q3

REPORT INFORMATION
  Report Type: 
  Country: None (occurrence: None)
  Receive Date: 20120712
  Receipt Date: 20120702
  Transmission Date: 20120928
  Serious: Yes (Hospitalization, Disabling)
  Sender: FDA-Public Use
  Company Number: US-MPIJNJ-2012-04181

PATIENT
  Sex: Female
  Weight: 86.168 kg

DRUGS (5)
  1. DILAUDID [Concomitant]
     Indication: PRODUCT USED FOR UNKNOWN INDICATION
     Dosage: UNK
     Dates: start: 20111220
  2. ZOMETA [Concomitant]
     Indication: PRODUCT USED FOR UNKNOWN INDICATION
     Dosage: UNK
     Dates: start: 20110523, end: 20120111
  3. OXYCONTIN [Concomitant]
     Indication: PRODUCT USED FOR UNKNOWN INDICATION
     Dosage: UNK
     Dates: start: 20120104
  4. VELCADE [Suspect]
     Indication: MULTIPLE MYELOMA
     Dosage: 3.5 MG, CYCLIC
     Route: 042
     Dates: start: 20110509, end: 20111205
  5. REVLIMID [Concomitant]
     Indication: PRODUCT USED FOR UNKNOWN INDICATION
     Dosage: UNK
     Dates: start: 20110519, end: 20111107

REACTIONS (5)
  - VOMITING [None]
  - SPINAL CORD COMPRESSION [None]
  - OESOPHAGITIS [None]
  - PARAPLEGIA [None]
  - NAUSEA [None]
